FAERS Safety Report 5604928-6 (Version None)
Quarter: 2008Q1

REPORT INFORMATION
  Report Type: 
  Country: None (occurrence: None)
  Receive Date: 20080128
  Receipt Date: 20080122
  Transmission Date: 20080703
  Serious: Yes (Hospitalization, Other)
  Sender: FDA-Public Use
  Company Number: BR-ROXANE LABORATORIES, INC-2008-DE-00396GD

PATIENT
  Age: 69 Year
  Sex: Male

DRUGS (7)
  1. PRAMIPEXOLE DIHYDROCHLORIDE [Suspect]
     Indication: PARKINSON'S DISEASE
  2. AMANTADINE HCL [Suspect]
     Indication: PARKINSON'S DISEASE
  3. AMANTADINE HCL [Suspect]
  4. SERTRALINE [Suspect]
     Indication: DEPRESSION
     Dosage: 50 MG UP TO 100 MG
  5. CARBIDOPA AND LEVODOPA [Suspect]
     Indication: PARKINSON'S DISEASE
     Dosage: LEVODOPA/CARBIDOPA 250 MG/25 MG UP TO 30 TABLETS
     Route: 048
  6. CARBIDOPA AND LEVODOPA [Suspect]
     Dosage: LEVODOPA/CARBIDOPA 250 MG/25 MG 1 TABLET 3/3 H
     Route: 048
  7. ENTACAPONE [Concomitant]
     Indication: PARKINSON'S DISEASE

REACTIONS (12)
  - BACK PAIN [None]
  - DEPRESSIVE SYMPTOM [None]
  - DOPAMINE DYSREGULATION SYNDROME [None]
  - DRUG ABUSE [None]
  - DRUG DEPENDENCE [None]
  - DRUG INEFFECTIVE [None]
  - DYSKINESIA [None]
  - DYSPHORIA [None]
  - HYPERHIDROSIS [None]
  - HYPOMANIA [None]
  - MOOD ALTERED [None]
  - STEREOTYPY [None]
